FAERS Safety Report 19357599 (Version 1)
Quarter: 2021Q2

REPORT INFORMATION
  Report Type: Report from Study
  Country: US (occurrence: US)
  Receive Date: 20210601
  Receipt Date: 20210601
  Transmission Date: 20210717
  Serious: Yes (Other)
  Sender: FDA-Public Use
  Company Number: US-BRISTOL-MYERS SQUIBB COMPANY-BMS-2021-051128

PATIENT
  Age: 44 Year
  Sex: Female
  Weight: 102.49 kg

DRUGS (1)
  1. APIXABAN [Suspect]
     Active Substance: APIXABAN
     Indication: ACQUIRED DYSFIBRINOGENAEMIA
     Dosage: 10 MILLIGRAM, BID
     Route: 048
     Dates: start: 20210524, end: 20210524

REACTIONS (8)
  - Dizziness [Recovering/Resolving]
  - Confusional state [Unknown]
  - Respiration abnormal [Unknown]
  - Feeling cold [Unknown]
  - Intentional product use issue [Unknown]
  - Cardiac flutter [Unknown]
  - Coagulopathy [Unknown]
  - Animal scratch [Unknown]

NARRATIVE: CASE EVENT DATE: 20210524
